FAERS Safety Report 17002943 (Version 1)
Quarter: 2019Q4

REPORT INFORMATION
  Report Type: Spontaneous
  Country: US (occurrence: US)
  Receive Date: 20191107
  Receipt Date: 20191107
  Transmission Date: 20200122
  Serious: No
  Sender: FDA-Public Use
  Company Number: US-ASTRAZENECA-2019SF45128

PATIENT
  Sex: Female

DRUGS (1)
  1. CRESTOR [Suspect]
     Active Substance: ROSUVASTATIN CALCIUM
     Dosage: UNKNOWN
     Route: 048

REACTIONS (19)
  - Abdominal pain upper [Unknown]
  - Asthenia [Unknown]
  - Formication [Unknown]
  - Discomfort [Unknown]
  - Amnesia [Unknown]
  - Chills [Unknown]
  - Depressed mood [Unknown]
  - Dyspnoea [Unknown]
  - Hepatic enzyme increased [Unknown]
  - Decreased appetite [Unknown]
  - Neuralgia [Unknown]
  - Breath odour [Unknown]
  - Confusional state [Unknown]
  - Nausea [Unknown]
  - Weight decreased [Unknown]
  - Diarrhoea [Unknown]
  - Fatigue [Unknown]
  - Eructation [Unknown]
  - Insomnia [Unknown]
